FAERS Safety Report 6253090-8 (Version None)
Quarter: 2009Q3

REPORT INFORMATION
  Report Type: 
  Country: None (occurrence: None)
  Receive Date: 20090701
  Receipt Date: 20090622
  Transmission Date: 20100115
  Serious: Yes (Other)
  Sender: FDA-Public Use
  Company Number: PHHY2009BR24943

PATIENT
  Age: 27 Year
  Sex: Female

DRUGS (2)
  1. ZELMAC [Suspect]
     Indication: CONSTIPATION
     Dosage: 6MG
     Route: 048
  2. ZELMAC [Suspect]
     Dosage: 6MG, 2 TABLETS PER DAY
     Route: 048
     Dates: start: 20090620

REACTIONS (2)
  - CONVULSION [None]
  - HEADACHE [None]
